FAERS Safety Report 7878918-7 (Version None)
Quarter: 2011Q4

REPORT INFORMATION
  Report Type: 
  Country: None (occurrence: None)
  Receive Date: 20111021
  Receipt Date: 20110429
  Transmission Date: 20120403
  Serious: Yes (Other)
  Sender: FDA-Public Use
  Company Number: 2011SP019844

PATIENT
  Age: 62 Year

DRUGS (2)
  1. TEMODAR [Suspect]
     Indication: BRAIN NEOPLASM
     Dates: end: 20110401
  2. TEMODAR [Suspect]
     Indication: BRAIN NEOPLASM
     Dates: start: 20110427

REACTIONS (1)
  - STEVENS-JOHNSON SYNDROME [None]
